FAERS Safety Report 15594531 (Version 1)
Quarter: 2018Q4

REPORT INFORMATION
  Report Type: Spontaneous
  Country: US (occurrence: US)
  Receive Date: 20181106
  Receipt Date: 20181106
  Transmission Date: 20190205
  Serious: Yes (Death, Hospitalization, Other)
  Sender: FDA-Public Use
  Company Number: US-B.I. PHARMACEUTICALS,INC./RIDGEFIELD-2018-BI-054001

PATIENT
  Age: 90 Year
  Sex: Female

DRUGS (4)
  1. DICLOFENAC SODIUM. [Concomitant]
     Active Substance: DICLOFENAC SODIUM
     Indication: ARTHRALGIA
     Dosage: FORM STRENGTH: 1%
     Route: 061
  2. PRADAXA [Suspect]
     Active Substance: DABIGATRAN ETEXILATE MESYLATE
     Indication: ATRIAL FIBRILLATION
     Route: 048
     Dates: start: 20180921
  3. METOPROLOL. [Concomitant]
     Active Substance: METOPROLOL
     Indication: ATRIAL FIBRILLATION
     Dosage: FORM STRENGTH: 25 MG; FORMULATION: CAPLET
     Route: 048
     Dates: start: 20180921
  4. BABY ASPIRIN [Concomitant]
     Active Substance: ASPIRIN
     Indication: PRODUCT USED FOR UNKNOWN INDICATION
     Dosage: FORM STRENGTH: 81 MG; FORMULATION: CAPLET
     Route: 048

REACTIONS (10)
  - Respiratory failure [Unknown]
  - Cardiac failure congestive [Unknown]
  - Cerebrovascular accident [Unknown]
  - Pleural effusion [Unknown]
  - Lung neoplasm malignant [Unknown]
  - Death [Fatal]
  - Heart rate increased [Unknown]
  - Abdominal pain [Unknown]
  - Breast cancer female [Unknown]
  - Renal failure [Unknown]

NARRATIVE: CASE EVENT DATE: 20181017
